FAERS Safety Report 25202232 (Version 2)
Quarter: 2025Q2

REPORT INFORMATION
  Report Type: Spontaneous
  Country: CA (occurrence: CA)
  Receive Date: 20250416
  Receipt Date: 20250601
  Transmission Date: 20250717
  Serious: Yes (Other)
  Sender: SANOFI AVENTIS
  Company Number: CA-SA-2025SA105907

PATIENT
  Sex: Male

DRUGS (1)
  1. TERIFLUNOMIDE [Suspect]
     Active Substance: TERIFLUNOMIDE
     Indication: Relapsing-remitting multiple sclerosis
     Dosage: 14 MG, QD
     Route: 048
     Dates: start: 20221213

REACTIONS (13)
  - Balance disorder [Unknown]
  - Cataract [Unknown]
  - Facial pain [Unknown]
  - Fall [Unknown]
  - Fatigue [Unknown]
  - Gait disturbance [Unknown]
  - Heart rate increased [Unknown]
  - Malaise [Unknown]
  - Rash pruritic [Unknown]
  - Asthenia [Unknown]
  - Product availability issue [Unknown]
  - Drug ineffective [Unknown]
  - Product dose omission issue [Unknown]
